FAERS Safety Report 24297996 (Version 2)
Quarter: 2025Q1

REPORT INFORMATION
  Report Type: Spontaneous
  Country: IT (occurrence: IT)
  Receive Date: 20240909
  Receipt Date: 20250319
  Transmission Date: 20250408
  Serious: Yes (Hospitalization, Other)
  Sender: PFIZER
  Company Number: IT-BAXTER-2024BAX023710

PATIENT
  Age: 64 Year
  Sex: Female
  Weight: 41 kg

DRUGS (71)
  1. CARBOPLATIN [Suspect]
     Active Substance: CARBOPLATIN
     Indication: Diffuse large B-cell lymphoma stage IV
     Route: 042
     Dates: start: 20240204, end: 20240204
  2. CARBOPLATIN [Suspect]
     Active Substance: CARBOPLATIN
     Dates: start: 20240306, end: 20240306
  3. CARBOPLATIN [Suspect]
     Active Substance: CARBOPLATIN
     Route: 042
  4. DOXORUBICIN HYDROCHLORIDE [Suspect]
     Active Substance: DOXORUBICIN HYDROCHLORIDE
     Route: 065
     Dates: start: 20231027, end: 20231029
  5. RITUXIMAB [Suspect]
     Active Substance: RITUXIMAB
     Indication: Diffuse large B-cell lymphoma stage IV
     Route: 065
     Dates: start: 20231027, end: 20231229
  6. RITUXIMAB [Suspect]
     Active Substance: RITUXIMAB
     Dates: start: 20240203, end: 20240305
  7. RITUXIMAB [Suspect]
     Active Substance: RITUXIMAB
     Dates: start: 20240305, end: 20240305
  8. RITUXIMAB [Suspect]
     Active Substance: RITUXIMAB
     Route: 042
  9. VINCRISTINE SULFATE [Suspect]
     Active Substance: VINCRISTINE SULFATE
     Route: 065
     Dates: start: 20231027
  10. ETOPOSIDE [Suspect]
     Active Substance: ETOPOSIDE
     Indication: Diffuse large B-cell lymphoma stage IV
     Route: 042
     Dates: start: 20240203, end: 20240307
  11. ETOPOSIDE [Suspect]
     Active Substance: ETOPOSIDE
     Dates: start: 20240305, end: 20240307
  12. ETOPOSIDE [Suspect]
     Active Substance: ETOPOSIDE
     Route: 042
  13. EPCORITAMAB [Suspect]
     Active Substance: EPCORITAMAB
     Indication: Diffuse large B-cell lymphoma stage IV
     Dates: start: 20240205, end: 20240205
  14. EPCORITAMAB [Suspect]
     Active Substance: EPCORITAMAB
     Dates: start: 20240213, end: 20240213
  15. EPCORITAMAB [Suspect]
     Active Substance: EPCORITAMAB
     Dates: start: 20240220, end: 20240220
  16. EPCORITAMAB [Suspect]
     Active Substance: EPCORITAMAB
     Dates: start: 20240307, end: 20240307
  17. EPCORITAMAB [Suspect]
     Active Substance: EPCORITAMAB
     Dates: start: 20240321, end: 20240510
  18. EPCORITAMAB [Suspect]
     Active Substance: EPCORITAMAB
     Route: 058
     Dates: start: 20240517
  19. EPCORITAMAB [Suspect]
     Active Substance: EPCORITAMAB
     Route: 058
     Dates: start: 20241004, end: 20241004
  20. EPCORITAMAB [Suspect]
     Active Substance: EPCORITAMAB
     Route: 058
     Dates: start: 20241212
  21. EPCORITAMAB [Suspect]
     Active Substance: EPCORITAMAB
     Route: 058
     Dates: start: 20241121, end: 20241121
  22. EPCORITAMAB [Suspect]
     Active Substance: EPCORITAMAB
     Route: 058
     Dates: start: 20241128, end: 20241128
  23. EPCORITAMAB [Suspect]
     Active Substance: EPCORITAMAB
     Route: 058
     Dates: start: 20241205, end: 20241205
  24. IFOSFAMIDE [Suspect]
     Active Substance: IFOSFAMIDE
     Indication: Diffuse large B-cell lymphoma stage IV
     Route: 042
     Dates: start: 20240204, end: 20240205
  25. IFOSFAMIDE [Suspect]
     Active Substance: IFOSFAMIDE
     Dates: start: 20240306, end: 20240306
  26. IFOSFAMIDE [Suspect]
     Active Substance: IFOSFAMIDE
     Route: 042
  27. PREDNISONE [Suspect]
     Active Substance: PREDNISONE
     Route: 065
     Dates: start: 20231027, end: 20231229
  28. CYCLOPHOSPHAMIDE [Suspect]
     Active Substance: CYCLOPHOSPHAMIDE
     Route: 065
     Dates: start: 20231027, end: 20231229
  29. POTASSIUM CHLORIDE [Concomitant]
     Active Substance: POTASSIUM CHLORIDE
     Route: 065
     Dates: start: 20240216, end: 20240225
  30. PREDNISONE [Concomitant]
     Active Substance: PREDNISONE
     Indication: Prophylaxis
     Dates: start: 20240214, end: 20240216
  31. PREDNISONE [Concomitant]
     Active Substance: PREDNISONE
     Dates: start: 20240221, end: 20240223
  32. PREDNISONE [Concomitant]
     Active Substance: PREDNISONE
     Dates: start: 20240308, end: 20240310
  33. ENOXAPARIN SODIUM [Concomitant]
     Active Substance: ENOXAPARIN SODIUM
     Route: 065
     Dates: start: 20231018, end: 20240515
  34. MYCOSTATIN [Concomitant]
     Active Substance: NYSTATIN
     Route: 065
     Dates: start: 20240213
  35. PANTOPRAZOLE SODIUM [Concomitant]
     Active Substance: PANTOPRAZOLE SODIUM
     Route: 065
     Dates: start: 20240228, end: 20240612
  36. METHYLPREDNISOLONE [Concomitant]
     Active Substance: METHYLPREDNISOLONE
     Indication: Prophylaxis
     Dates: start: 20240213, end: 20240213
  37. METHYLPREDNISOLONE [Concomitant]
     Active Substance: METHYLPREDNISOLONE
     Dates: start: 20240220, end: 20240220
  38. METHYLPREDNISOLONE [Concomitant]
     Active Substance: METHYLPREDNISOLONE
     Dates: start: 20240305, end: 20240305
  39. METHYLPREDNISOLONE [Concomitant]
     Active Substance: METHYLPREDNISOLONE
     Dates: start: 20240307, end: 20240307
  40. LEVOFLOXACIN [Concomitant]
     Active Substance: LEVOFLOXACIN
     Route: 065
     Dates: start: 20240211
  41. CEFTRIAXONE [Concomitant]
     Active Substance: CEFTRIAXONE
     Route: 065
     Dates: start: 20240224, end: 20240324
  42. ALLOPURINOL [Concomitant]
     Active Substance: ALLOPURINOL
     Route: 065
     Dates: start: 20231018, end: 20240612
  43. FILGRASTIM [Concomitant]
     Active Substance: FILGRASTIM
     Route: 065
     Dates: start: 20240211, end: 20240602
  44. ONDANSETRON [Concomitant]
     Active Substance: ONDANSETRON
     Route: 065
     Dates: start: 20240203, end: 20240305
  45. ALLOPURINOL [Concomitant]
     Active Substance: ALLOPURINOL
     Route: 065
     Dates: start: 20231018, end: 20240307
  46. METOCLOPRAMIDE [Concomitant]
     Active Substance: METOCLOPRAMIDE
     Route: 065
     Dates: start: 20240210, end: 20240218
  47. FLUCONAZOLE [Concomitant]
     Active Substance: FLUCONAZOLE
     Route: 065
     Dates: start: 20240301, end: 20240307
  48. LOPERAMIDE [Concomitant]
     Active Substance: LOPERAMIDE
     Route: 065
     Dates: start: 20240211, end: 20240218
  49. ACETAMINOPHEN [Concomitant]
     Active Substance: ACETAMINOPHEN
     Indication: Premedication
     Route: 065
     Dates: start: 20240211, end: 20240221
  50. ACETAMINOPHEN [Concomitant]
     Active Substance: ACETAMINOPHEN
     Dates: start: 20240305, end: 20240305
  51. ACETAMINOPHEN [Concomitant]
     Active Substance: ACETAMINOPHEN
     Route: 048
     Dates: start: 20241212, end: 20241212
  52. ACETAMINOPHEN [Concomitant]
     Active Substance: ACETAMINOPHEN
     Route: 048
     Dates: start: 20241128, end: 20241128
  53. ACETAMINOPHEN [Concomitant]
     Active Substance: ACETAMINOPHEN
     Route: 048
     Dates: start: 20241205, end: 20241205
  54. ACETAMINOPHEN [Concomitant]
     Active Substance: ACETAMINOPHEN
     Route: 048
     Dates: start: 20240305, end: 20240305
  55. ACETAMINOPHEN [Concomitant]
     Active Substance: ACETAMINOPHEN
     Route: 048
     Dates: start: 20241121, end: 20241121
  56. ACYCLOVIR [Concomitant]
     Active Substance: ACYCLOVIR
     Route: 065
     Dates: start: 20240301, end: 20240308
  57. TATIONIL [Concomitant]
     Route: 065
     Dates: start: 20240209, end: 20240214
  58. CHLORPHENIRAMINE MALEATE [Concomitant]
     Active Substance: CHLORPHENIRAMINE MALEATE
     Indication: Premedication
     Dates: start: 20240305, end: 20240305
  59. CHLORPHENIRAMINE MALEATE [Concomitant]
     Active Substance: CHLORPHENIRAMINE MALEATE
     Route: 042
     Dates: start: 20241205, end: 20241205
  60. CHLORPHENIRAMINE MALEATE [Concomitant]
     Active Substance: CHLORPHENIRAMINE MALEATE
     Route: 042
     Dates: start: 20240305, end: 20240305
  61. CHLORPHENIRAMINE MALEATE [Concomitant]
     Active Substance: CHLORPHENIRAMINE MALEATE
     Route: 042
     Dates: start: 20241212, end: 20241212
  62. CHLORPHENIRAMINE MALEATE [Concomitant]
     Active Substance: CHLORPHENIRAMINE MALEATE
     Route: 042
     Dates: start: 20241121, end: 20241121
  63. CHLORPHENIRAMINE MALEATE [Concomitant]
     Active Substance: CHLORPHENIRAMINE MALEATE
     Route: 042
     Dates: start: 20241128, end: 20241128
  64. URSODIOL [Concomitant]
     Active Substance: URSODIOL
     Route: 065
     Dates: start: 20240209, end: 20240213
  65. SULFAMETHOXAZOLE AND TRIMETHOPRIM [Concomitant]
     Active Substance: SULFAMETHOXAZOLE\TRIMETHOPRIM
     Route: 065
     Dates: start: 20231025
  66. ASPIRIN [Concomitant]
     Active Substance: ASPIRIN
     Route: 065
     Dates: start: 20240516
  67. SODIUM POLYSTYRENE SULFONATE [Concomitant]
     Active Substance: SODIUM POLYSTYRENE SULFONATE
     Route: 065
     Dates: start: 20241105
  68. AZITHROMYCIN [Concomitant]
     Active Substance: AZITHROMYCIN
     Route: 065
     Dates: start: 20241005, end: 20250216
  69. AZITHROMYCIN [Concomitant]
     Active Substance: AZITHROMYCIN
     Route: 065
     Dates: start: 20250307
  70. AMOXICILLIN [Concomitant]
     Active Substance: AMOXICILLIN
     Route: 065
     Dates: start: 20250205, end: 20250211
  71. CLAVULANIC ACID [Concomitant]
     Active Substance: CLAVULANIC ACID
     Route: 065
     Dates: start: 20250205, end: 20250211

REACTIONS (5)
  - Myocardial infarction [Not Recovered/Not Resolved]
  - Cold sweat [Unknown]
  - Chest discomfort [Unknown]
  - Dizziness [Unknown]
  - Off label use [Unknown]

NARRATIVE: CASE EVENT DATE: 20240204
